FAERS Safety Report 20041281 (Version 1)
Quarter: 2021Q4

REPORT INFORMATION
  Report Type: Spontaneous
  Country: FR (occurrence: FR)
  Receive Date: 20211107
  Receipt Date: 20211107
  Transmission Date: 20220303
  Serious: Yes (Death, Other)
  Sender: FDA-Public Use
  Company Number: FR-AMGEN-FRASP2021172347

PATIENT

DRUGS (19)
  1. PEGFILGRASTIM [Suspect]
     Active Substance: PEGFILGRASTIM
     Indication: Prophylaxis
     Dosage: 6 MILLIGRAM, AFTER CHEMO AT DAY 04 AFTER EACH CYCLE OF CHEMO
     Route: 058
  2. BRENTUXIMAB VEDOTIN [Concomitant]
     Active Substance: BRENTUXIMAB VEDOTIN
     Indication: Non-Hodgkin^s lymphoma
     Dosage: 180 MILLIGRAM ON DAY 1 EVERY 21 DAYS
     Route: 042
  3. BRENTUXIMAB VEDOTIN [Concomitant]
     Active Substance: BRENTUXIMAB VEDOTIN
     Indication: Peripheral T-cell lymphoma unspecified
  4. DEXAMETHASONE [Concomitant]
     Active Substance: DEXAMETHASONE
     Indication: Non-Hodgkin^s lymphoma
     Dosage: 40 MILLIGRAM ON DAY 1 TO 4 DAILY
     Route: 048
  5. DEXAMETHASONE [Concomitant]
     Active Substance: DEXAMETHASONE
     Indication: Peripheral T-cell lymphoma unspecified
  6. CYTARABINE [Concomitant]
     Active Substance: CYTARABINE
     Indication: Non-Hodgkin^s lymphoma
     Dosage: 2000 MILLIGRAM/SQ. METER ON DAY 1 AND 2
     Route: 042
  7. CYTARABINE [Concomitant]
     Active Substance: CYTARABINE
     Indication: Peripheral T-cell lymphoma unspecified
     Dosage: 1000 MILLIGRAM/SQ. METER ON DAY 1 AND 2
     Route: 042
  8. CYTARABINE [Concomitant]
     Active Substance: CYTARABINE
     Dosage: 800 MILLIGRAM/SQ. METER ON DAY 1 AND 2
     Route: 042
  9. CISPLATIN [Concomitant]
     Active Substance: CISPLATIN
     Indication: Non-Hodgkin^s lymphoma
     Dosage: 100 MILLIGRAM/SQ. METER ON DAY 1
     Route: 042
  10. CISPLATIN [Concomitant]
     Active Substance: CISPLATIN
     Indication: Peripheral T-cell lymphoma unspecified
  11. CARBOPLATIN [Concomitant]
     Active Substance: CARBOPLATIN
     Indication: Non-Hodgkin^s lymphoma
     Dosage: 100 MILLIGRAM/SQ. METER ON DAY 1
     Route: 042
  12. CARBOPLATIN [Concomitant]
     Active Substance: CARBOPLATIN
     Indication: Peripheral T-cell lymphoma unspecified
  13. BENDAMUSTINE [Concomitant]
     Active Substance: BENDAMUSTINE
     Indication: Peripheral T-cell lymphoma unspecified
     Dosage: 90 MILLIGRAM/SQ. METER ON DAY 1 AND 2
     Route: 042
  14. BENDAMUSTINE [Concomitant]
     Active Substance: BENDAMUSTINE
     Indication: Non-Hodgkin^s lymphoma
  15. DEXCHLORPHENIRAMINE [Concomitant]
     Active Substance: DEXCHLORPHENIRAMINE
     Dosage: 5 MILLIGRAM 30 MINUTES BEFORE BV
  16. METHYLPREDNISOLONE [Concomitant]
     Active Substance: METHYLPREDNISOLONE
     Dosage: 60 MILLIGRAM 30 MINUTES BEFORE BV
  17. ONDANSETRON [Concomitant]
     Active Substance: ONDANSETRON
     Dosage: 8 MILLIGRAM BEFORE BENDAMUSTINE/CISPLATIN
  18. APREPITANT [Concomitant]
     Active Substance: APREPITANT
     Dosage: 125 MILLIGRAM BEFORE CISPLATIN
  19. APREPITANT [Concomitant]
     Active Substance: APREPITANT
     Dosage: 80 MILLIGRAM, QD DURING 2 DAYS AFTER CISPLATIN OR CARBOPLATIN

REACTIONS (2)
  - Death [Fatal]
  - Peripheral T-cell lymphoma unspecified [Unknown]
